FAERS Safety Report 5277828-1 (Version None)
Quarter: 2007Q1

REPORT INFORMATION
  Report Type: 
  Country: None (occurrence: None)
  Receive Date: 20070321
  Receipt Date: 20070314
  Transmission Date: 20070707
  Serious: Yes (Other)
  Sender: FDA-Public Use
  Company Number: 011697

PATIENT
  Sex: Female

DRUGS (6)
  1. MEDROXYPROGESTERONE ACETATE [Suspect]
     Dosage: ORAL
     Route: 048
     Dates: start: 19930101, end: 20011101
  2. AYGESTIN [Suspect]
     Dosage: ORAL
     Route: 048
     Dates: start: 19930101, end: 20010101
  3. PREMARIN [Suspect]
     Dosage: ORAL
     Route: 048
     Dates: start: 19930101, end: 20011101
  4. PREMPHASE (PREMARIN;CYCRIN 14/14) [Suspect]
     Dosage: ORAL
     Route: 048
     Dates: start: 19930101, end: 20011101
  5. PROMETRIUM [Suspect]
     Dosage: ORAL
     Route: 048
     Dates: start: 19930101, end: 20011101
  6. PROVERA [Suspect]
     Dosage: ORAL
     Route: 048
     Dates: start: 19930101, end: 20011101

REACTIONS (1)
  - BREAST CANCER FEMALE [None]
